FAERS Safety Report 4488973-2 (Version None)
Quarter: 2004Q4

REPORT INFORMATION
  Report Type: 
  Country: None (occurrence: None)
  Receive Date: 20041026
  Receipt Date: 20041012
  Transmission Date: 20050328
  Serious: No
  Sender: FDA-Public Use
  Company Number: 2004AP00245

PATIENT
  Age: 81 Year
  Sex: Male

DRUGS (7)
  1. ZOLADEX [Suspect]
     Indication: PROSTATE CANCER
     Dosage: 3.6 MG MONTH SQ
     Route: 058
     Dates: start: 19970901, end: 20031126
  2. MADOPAR [Suspect]
     Indication: PARKINSON'S DISEASE
     Dosage: 3 DF DAILY PO
     Route: 048
     Dates: start: 20030822
  3. CABERGOLINE [Concomitant]
  4. GANATON [Concomitant]
  5. EXCELASE [Concomitant]
  6. RISUMIC [Concomitant]
  7. DOPS [Concomitant]

REACTIONS (4)
  - BLOOD PRESSURE FLUCTUATION [None]
  - DIABETES INSIPIDUS [None]
  - HYPOVOLAEMIC SHOCK [None]
  - PARKINSON'S DISEASE [None]
